FAERS Safety Report 4471050-4 (Version None)
Quarter: 2004Q4

REPORT INFORMATION
  Report Type: 
  Country: None (occurrence: None)
  Receive Date: 20041011
  Receipt Date: 20041005
  Transmission Date: 20050328
  Serious: Yes (Hospitalization)
  Sender: FDA-Public Use
  Company Number: FR-GLAXOSMITHKLINE-B0347173A

PATIENT
  Age: 56 Year
  Sex: Male

DRUGS (8)
  1. AGENERASE [Suspect]
     Indication: HIV INFECTION
     Dosage: 1UNIT PER DAY
     Route: 048
     Dates: start: 20040701
  2. VOLTAREN [Suspect]
     Indication: GOUT
     Dosage: 1UNIT PER DAY
     Route: 048
  3. NORVIR [Suspect]
     Indication: HIV INFECTION
     Dosage: 1UNIT PER DAY
     Route: 048
     Dates: start: 20040701
  4. SUSTIVA [Suspect]
     Indication: HIV INFECTION
     Route: 048
     Dates: start: 20040701, end: 20040712
  5. KALETRA [Suspect]
     Indication: HIV INFECTION
     Dosage: 1UNIT PER DAY
     Route: 048
     Dates: start: 20040701
  6. VIREAD [Suspect]
     Indication: HIV INFECTION
     Dosage: 1UNIT PER DAY
     Route: 048
     Dates: start: 20040701
  7. BACTRIM [Concomitant]
     Route: 048
  8. MOPRAL [Concomitant]
     Route: 048

REACTIONS (10)
  - ACUTE PULMONARY OEDEMA [None]
  - BLOOD CREATININE INCREASED [None]
  - DYSPNOEA [None]
  - HYPERKALAEMIA [None]
  - RASH [None]
  - RENAL FAILURE ACUTE [None]
  - RENAL TUBULAR DISORDER [None]
  - RENAL TUBULAR NECROSIS [None]
  - SENSE OF OPPRESSION [None]
  - VENTRICULAR DYSFUNCTION [None]
